FAERS Safety Report 11221449 (Version 1)
Quarter: 2015Q2

REPORT INFORMATION
  Report Type: Spontaneous
  Country: US (occurrence: US)
  Receive Date: 20150626
  Receipt Date: 20150626
  Transmission Date: 20150821
  Serious: Yes (Other)
  Sender: FDA-Public Use
  Company Number: US-PFIZER INC-2015209162

PATIENT
  Age: 40 Year
  Sex: Male
  Weight: 117.91 kg

DRUGS (3)
  1. NORCO [Suspect]
     Active Substance: ACETAMINOPHEN\HYDROCODONE BITARTRATE
     Dosage: UNK UNK, AS NEEDED
  2. SUTENT [Suspect]
     Active Substance: SUNITINIB MALATE
     Indication: METASTATIC RENAL CELL CARCINOMA
     Dosage: 37.5 MG, CYCLIC (4 WEEKS ON 2 WEEKS OFF)
     Route: 048
  3. MS CONTIN [Suspect]
     Active Substance: MORPHINE SULFATE
     Dosage: UNK

REACTIONS (11)
  - Haematochezia [Unknown]
  - Pain in extremity [Unknown]
  - Pyrexia [Unknown]
  - Oral mucosal eruption [Unknown]
  - Hepatic enzyme increased [Unknown]
  - Rash [Unknown]
  - Tachycardia [Unknown]
  - Back pain [Not Recovered/Not Resolved]
  - Hypoaesthesia [Unknown]
  - Paraesthesia [Unknown]
  - Fatigue [Unknown]
